FAERS Safety Report 7336576-4 (Version None)
Quarter: 2011Q1

REPORT INFORMATION
  Report Type: 
  Country: None (occurrence: None)
  Receive Date: 20110307
  Receipt Date: 20110225
  Transmission Date: 20110831
  Serious: Yes (Hospitalization, Disabling, Other)
  Sender: FDA-Public Use
  Company Number: US-MERCK-1002USA02446

PATIENT
  Age: 59 Year
  Sex: Female
  Weight: 72 kg

DRUGS (3)
  1. BONIVA [Suspect]
     Route: 048
     Dates: end: 20080401
  2. BONIVA [Suspect]
     Indication: OSTEOPENIA
     Route: 048
     Dates: start: 20050801, end: 20080301
  3. FOSAMAX [Suspect]
     Indication: OSTEOPENIA
     Route: 048
     Dates: start: 20020820, end: 20050801

REACTIONS (38)
  - COLON ADENOMA [None]
  - EROSIVE OESOPHAGITIS [None]
  - INFECTION [None]
  - PULPITIS DENTAL [None]
  - GLUCOSE TOLERANCE IMPAIRED [None]
  - GINGIVITIS [None]
  - VITREOUS FLOATERS [None]
  - HYPERLIPIDAEMIA [None]
  - IMPAIRED HEALING [None]
  - SINUS DISORDER [None]
  - OSTEONECROSIS [None]
  - BASAL CELL CARCINOMA [None]
  - JAW DISORDER [None]
  - DENTAL CARIES [None]
  - HYPOAESTHESIA ORAL [None]
  - VISUAL IMPAIRMENT [None]
  - PYREXIA [None]
  - REGURGITATION [None]
  - LOW TURNOVER OSTEOPATHY [None]
  - TOOTH FRACTURE [None]
  - COLONIC POLYP [None]
  - ADVERSE DRUG REACTION [None]
  - JOINT ANKYLOSIS [None]
  - FIBROCYSTIC BREAST DISEASE [None]
  - TYPE 2 DIABETES MELLITUS [None]
  - LUNG INFILTRATION [None]
  - ORAL TORUS [None]
  - MELANOCYTIC NAEVUS [None]
  - MACULAR OPACITY [None]
  - OSTEOARTHRITIS [None]
  - ADENOMA BENIGN [None]
  - GASTROINTESTINAL DISORDER [None]
  - UTERINE MALPOSITION [None]
  - ABASIA [None]
  - TEMPOROMANDIBULAR JOINT SYNDROME [None]
  - SINUSITIS [None]
  - ILEUS PARALYTIC [None]
  - JAW FRACTURE [None]
